FAERS Safety Report 13032621 (Version 2)
Quarter: 2017Q1

REPORT INFORMATION
  Report Type: Spontaneous
  Country: US (occurrence: US)
  Receive Date: 20161215
  Receipt Date: 20170323
  Transmission Date: 20170428
  Serious: Yes (Hospitalization)
  Sender: FDA-Public Use
  Company Number: US-ALLERGAN-1677435US

PATIENT
  Age: 57 Year
  Sex: Female

DRUGS (2)
  1. VIBERZI [Suspect]
     Active Substance: ELUXADOLINE
     Indication: IRRITABLE BOWEL SYNDROME
     Dosage: 100 MG, BID
     Route: 048
     Dates: start: 201611, end: 20161130
  2. VESICARE [Concomitant]
     Active Substance: SOLIFENACIN SUCCINATE
     Indication: BLADDER SPASM
     Dosage: UNK

REACTIONS (5)
  - Blood pressure increased [Recovering/Resolving]
  - Incorrect dose administered [Unknown]
  - Eating disorder [Recovered/Resolved]
  - Pancreatitis [Recovering/Resolving]
  - Oesophageal spasm [Recovering/Resolving]

NARRATIVE: CASE EVENT DATE: 201611
